FAERS Safety Report 6332379-8 (Version None)
Quarter: 2009Q3

REPORT INFORMATION
  Report Type: 
  Country: None (occurrence: None)
  Receive Date: 20090828
  Receipt Date: 20090817
  Transmission Date: 20100115
  Serious: Yes (Other)
  Sender: FDA-Public Use
  Company Number: US-NAPPMUNDI-DEU-2009-0005467

PATIENT
  Age: 52 Year
  Sex: Female
  Weight: 62 kg

DRUGS (15)
  1. HYDROMORPHONE HCL (SIMILAR TO 19-892) [Suspect]
     Dosage: 0.5 MG, SINGLE
  2. MIDAZOLAM HCL [Concomitant]
  3. FENTANYL [Concomitant]
  4. PROPOFOL [Concomitant]
  5. VECURONIUM BROMIDE [Concomitant]
  6. DESFLURANE [Concomitant]
  7. EPHEDRINE [Concomitant]
  8. PHENYLEPHRINE [Concomitant]
  9. ESMOLOL HCL [Concomitant]
  10. LABETALOL HCL [Concomitant]
  11. NEOSTIGMINE [Concomitant]
  12. GLYCOPYRROLATE                     /00196202/ [Concomitant]
  13. METOPROLOL [Concomitant]
  14. AMLODIPINE [Concomitant]
  15. ATORVASTATIN [Concomitant]

REACTIONS (1)
  - MUSCULAR WEAKNESS [None]
